FAERS Safety Report 23380003 (Version 10)
Quarter: 2024Q4

REPORT INFORMATION
  Report Type: Report from Study
  Country: CA (occurrence: CA)
  Receive Date: 20240109
  Receipt Date: 20241204
  Transmission Date: 20250115
  Serious: Yes (Hospitalization)
  Sender: ABBVIE
  Company Number: CA-ABBVIE-5575516

PATIENT
  Age: 81 Year
  Sex: Male

DRUGS (23)
  1. VENETOCLAX [Suspect]
     Active Substance: VENETOCLAX
     Indication: Acute myeloid leukaemia
     Route: 048
     Dates: start: 20230909, end: 20230909
  2. VENETOCLAX [Suspect]
     Active Substance: VENETOCLAX
     Indication: Acute myeloid leukaemia
     Route: 048
     Dates: start: 20230911, end: 20230916
  3. VENETOCLAX [Suspect]
     Active Substance: VENETOCLAX
     Indication: Acute myeloid leukaemia
     Route: 048
     Dates: start: 20230920, end: 20230922
  4. VENETOCLAX [Suspect]
     Active Substance: VENETOCLAX
     Indication: Acute myeloid leukaemia
     Route: 048
     Dates: start: 20240108, end: 20240115
  5. VENETOCLAX [Suspect]
     Active Substance: VENETOCLAX
     Indication: Acute myeloid leukaemia
     Route: 048
     Dates: start: 20230910, end: 20230910
  6. VENETOCLAX [Suspect]
     Active Substance: VENETOCLAX
     Indication: Acute myeloid leukaemia
     Route: 048
     Dates: start: 20231016, end: 20231026
  7. VENETOCLAX [Suspect]
     Active Substance: VENETOCLAX
     Indication: Acute myeloid leukaemia
     Route: 048
     Dates: start: 20231211, end: 20231218
  8. VENETOCLAX [Suspect]
     Active Substance: VENETOCLAX
     Indication: Acute myeloid leukaemia
     Route: 048
     Dates: start: 20240402, end: 20240409
  9. VENETOCLAX [Suspect]
     Active Substance: VENETOCLAX
     Indication: Acute myeloid leukaemia
     Route: 048
     Dates: start: 20240226, end: 20240404
  10. VENETOCLAX [Suspect]
     Active Substance: VENETOCLAX
     Indication: Acute myeloid leukaemia
     Route: 048
     Dates: start: 20240503, end: 20240909
  11. VENETOCLAX [Suspect]
     Active Substance: VENETOCLAX
     Indication: Acute myeloid leukaemia
     Route: 048
     Dates: start: 20240612, end: 20240618
  12. VENETOCLAX [Suspect]
     Active Substance: VENETOCLAX
     Indication: Acute myeloid leukaemia
     Route: 048
     Dates: start: 20240812, end: 20240818
  13. AZACITIDINE [Suspect]
     Active Substance: AZACITIDINE
     Indication: Product used for unknown indication
     Route: 048
     Dates: start: 20240226, end: 20240301
  14. AZACITIDINE [Suspect]
     Active Substance: AZACITIDINE
     Indication: Product used for unknown indication
     Route: 048
     Dates: start: 20230909, end: 20230915
  15. AZACITIDINE [Suspect]
     Active Substance: AZACITIDINE
     Indication: Product used for unknown indication
     Route: 048
     Dates: start: 20231211, end: 20231217
  16. AZACITIDINE [Suspect]
     Active Substance: AZACITIDINE
     Indication: Product used for unknown indication
     Route: 048
     Dates: start: 20231016, end: 20231022
  17. AZACITIDINE [Suspect]
     Active Substance: AZACITIDINE
     Indication: Product used for unknown indication
     Route: 048
     Dates: start: 20240402, end: 20240408
  18. AZACITIDINE [Suspect]
     Active Substance: AZACITIDINE
     Indication: Product used for unknown indication
     Route: 048
     Dates: start: 20240108, end: 20240115
  19. COVID-19 vaccine [Concomitant]
     Indication: COVID-19 prophylaxis
     Dosage: NUMBER OF VACCINATION 1?MIXED
     Route: 030
  20. COVID-19 vaccine [Concomitant]
     Indication: COVID-19 prophylaxis
     Dosage: NUMBER OF VACCINATION 2?MIXED
     Route: 030
  21. COVID-19 vaccine [Concomitant]
     Indication: COVID-19 prophylaxis
     Dosage: NUMBER OF VACCINATION 3?MIXED
     Route: 030
  22. COVID-19 vaccine [Concomitant]
     Indication: COVID-19 prophylaxis
     Dosage: NUMBER OF VACCINATION 4?MIXED
     Route: 030
  23. COVID-19 vaccine [Concomitant]
     Indication: COVID-19 prophylaxis
     Dosage: NUMBER OF VACCINATION 5?MIXED
     Route: 030

REACTIONS (10)
  - Clostridium colitis [Recovered/Resolved]
  - Mobility decreased [Unknown]
  - Delirium [Recovered/Resolved]
  - Atelectasis [Unknown]
  - Rash maculo-papular [Recovered/Resolved]
  - Clostridium test positive [Recovered/Resolved]
  - Febrile neutropenia [Unknown]
  - Hypoxia [Recovered/Resolved]
  - Diarrhoea [Unknown]
  - Febrile neutropenia [Recovered/Resolved with Sequelae]

NARRATIVE: CASE EVENT DATE: 20230101
